FAERS Safety Report 8555352-8 (Version None)
Quarter: 2012Q3

REPORT INFORMATION
  Report Type: 
  Country: None (occurrence: None)
  Receive Date: 20120731
  Receipt Date: 20120423
  Transmission Date: 20120928
  Serious: No
  Sender: FDA-Public Use
  Company Number: US-ASTRAZENECA-2011SE35963

PATIENT
  Age: 39 Year
  Sex: Male
  Weight: 92.1 kg

DRUGS (9)
  1. SEROQUEL [Suspect]
     Indication: DEPRESSION
     Route: 048
  2. SEROQUEL [Suspect]
     Route: 048
     Dates: start: 20100101
  3. ALBUTEROL [Concomitant]
     Indication: ASTHMA
  4. SEROQUEL [Suspect]
     Route: 048
  5. DIAZEPAM [Concomitant]
     Indication: PAIN
  6. SEROQUEL [Suspect]
     Route: 048
  7. SEROQUEL [Suspect]
     Route: 048
     Dates: start: 20110620
  8. PHENERGAN HCL [Concomitant]
     Indication: NAUSEA
  9. SEROQUEL [Suspect]
     Dosage: 3 AND HALF TABLETS HS
     Route: 048

REACTIONS (7)
  - MUSCLE TIGHTNESS [None]
  - CONSTIPATION [None]
  - INSOMNIA [None]
  - HOT FLUSH [None]
  - INTENTIONAL DRUG MISUSE [None]
  - DRUG WITHDRAWAL SYNDROME [None]
  - MOOD SWINGS [None]
